FAERS Safety Report 5490531-8 (Version None)
Quarter: 2007Q4

REPORT INFORMATION
  Report Type: 
  Country: None (occurrence: None)
  Receive Date: 20071019
  Receipt Date: 20071016
  Transmission Date: 20080405
  Serious: Yes (Hospitalization)
  Sender: FDA-Public Use
  Company Number: PHEH2007US13680

PATIENT

DRUGS (2)
  1. TEKTURNA [Suspect]
     Indication: BLOOD PRESSURE INCREASED
     Dosage: 150 UNK, UNK
  2. TEKTURNA [Suspect]
     Dosage: 300 UNK, UNK

REACTIONS (1)
  - HYPERTENSION [None]
